FAERS Safety Report 18599173 (Version 5)
Quarter: 2022Q2

REPORT INFORMATION
  Report Type: Report from Study
  Country: US (occurrence: US)
  Receive Date: 20201210
  Receipt Date: 20220519
  Transmission Date: 20220721
  Serious: Yes (Death)
  Sender: FDA-Public Use
  Company Number: NVSC2020US328407

PATIENT
  Age: 12 Year
  Sex: Female
  Weight: 97 kg

DRUGS (1)
  1. KYMRIAH [Suspect]
     Active Substance: TISAGENLECLEUCEL
     Indication: Acute lymphocytic leukaemia
     Dosage: 26 ML, ONCE/SINGLE
     Route: 042
     Dates: start: 20201106, end: 20201106

REACTIONS (1)
  - Drug ineffective [Fatal]
